FAERS Safety Report 11512248 (Version 1)
Quarter: 2015Q3

REPORT INFORMATION
  Report Type: Spontaneous
  Country: US (occurrence: US)
  Receive Date: 20150916
  Receipt Date: 20150916
  Transmission Date: 20151125
  Serious: Yes (Hospitalization)
  Sender: FDA-Public Use
  Company Number: US-BRISTOL-MYERS SQUIBB COMPANY-BMS-2015-062043

PATIENT
  Age: 72 Year
  Sex: Male

DRUGS (2)
  1. NIVOLUMAB [Concomitant]
     Active Substance: NIVOLUMAB
     Indication: NON-HODGKIN^S LYMPHOMA
     Route: 065
  2. IPILIMUMAB [Suspect]
     Active Substance: IPILIMUMAB
     Indication: NON-HODGKIN^S LYMPHOMA
     Dosage: 3 MG/KG, Q3WK
     Route: 042

REACTIONS (1)
  - Colitis [Unknown]
